FAERS Safety Report 24011653 (Version 1)
Quarter: 2024Q2

REPORT INFORMATION
  Report Type: Spontaneous
  Country: US (occurrence: US)
  Receive Date: 20240625
  Receipt Date: 20240625
  Transmission Date: 20240716
  Serious: No
  Sender: FDA-Public Use
  Company Number: US-JNJFOC-20240659855

PATIENT
  Age: 76 Year
  Sex: Female
  Weight: 97.5 kg

DRUGS (19)
  1. OPSUMIT [Suspect]
     Active Substance: MACITENTAN
     Indication: Pulmonary arterial hypertension
     Route: 048
  2. TREPROSTINIL [Suspect]
     Active Substance: TREPROSTINIL
     Indication: Pulmonary arterial hypertension
     Route: 055
     Dates: start: 20230615
  3. ADEMPAS [Concomitant]
     Active Substance: RIOCIGUAT
  4. LEVOCETIRIZINE DIHYDROCHLORIDE [Concomitant]
     Active Substance: LEVOCETIRIZINE DIHYDROCHLORIDE
  5. CARBAMIDE PEROXIDE [Concomitant]
     Active Substance: CARBAMIDE PEROXIDE
  6. ROSUVASTATIN CALCIUM [Concomitant]
     Active Substance: ROSUVASTATIN CALCIUM
  7. MAGNESIUM OXIDE [Concomitant]
     Active Substance: MAGNESIUM OXIDE
  8. ELIQUIS [Concomitant]
     Active Substance: APIXABAN
  9. ALBUTEROL SULFATE [Concomitant]
     Active Substance: ALBUTEROL SULFATE
  10. IRON [Concomitant]
     Active Substance: IRON
  11. CENTRUM SILVER [ASCORBIC ACID;CALCIUM;MINERALS NOS;RETINOL;TOCOPHERYL [Concomitant]
  12. OXYGEN [Concomitant]
     Active Substance: OXYGEN
  13. FISH OIL [Concomitant]
     Active Substance: FISH OIL
  14. ASPIRIN [Concomitant]
     Active Substance: ASPIRIN
  15. IPRATROPIUM BROMIDE [Concomitant]
     Active Substance: IPRATROPIUM BROMIDE\IPRATROPIUM BROMIDE ANHYDROUS
  16. TORSEMIDE [Concomitant]
     Active Substance: TORSEMIDE
  17. AMOXICILLIN [Concomitant]
     Active Substance: AMOXICILLIN
     Dates: start: 20240403
  18. AZELASTINE HYDROCHLORIDE [Concomitant]
     Active Substance: AZELASTINE HYDROCHLORIDE
  19. PANTOPRAZOLE SODIUM [Concomitant]
     Active Substance: PANTOPRAZOLE SODIUM

REACTIONS (10)
  - Oropharyngeal pain [Unknown]
  - Cough [Unknown]
  - Seasonal allergy [Not Recovered/Not Resolved]
  - Productive cough [Unknown]
  - Fluid retention [Unknown]
  - Rash erythematous [Unknown]
  - Swelling [Unknown]
  - Weight increased [Unknown]
  - Sputum discoloured [Unknown]
  - Rash pruritic [Unknown]
